FAERS Safety Report 4419390-9 (Version None)
Quarter: 2004Q3

REPORT INFORMATION
  Report Type: 
  Country: None (occurrence: None)
  Receive Date: 20040809
  Receipt Date: 20040121
  Transmission Date: 20050211
  Serious: No
  Sender: FDA-Public Use
  Company Number: US-GLAXOSMITHKLINE-A0494903A

PATIENT
  Age: 52 Year
  Sex: Male
  Weight: 117.7 kg

DRUGS (2)
  1. PAXIL [Suspect]
     Indication: ILL-DEFINED DISORDER
     Route: 048
  2. XANAX [Concomitant]

REACTIONS (1)
  - ANXIETY [None]
